FAERS Safety Report 5685369-2 (Version None)
Quarter: 2008Q1

REPORT INFORMATION
  Report Type: 
  Country: None (occurrence: None)
  Receive Date: 20080328
  Receipt Date: 20080319
  Transmission Date: 20080703
  Serious: Yes (Other)
  Sender: FDA-Public Use
  Company Number: US-PFIZER INC-2008025435

PATIENT
  Age: 30 Year
  Sex: Male

DRUGS (2)
  1. XANAX [Suspect]
     Route: 048
  2. PERCOCET [Suspect]
     Route: 048

REACTIONS (4)
  - DRUG ABUSE [None]
  - DRUG DEPENDENCE [None]
  - INTENTIONAL DRUG MISUSE [None]
  - IRRITABILITY [None]
